FAERS Safety Report 4654558-8 (Version None)
Quarter: 2005Q2

REPORT INFORMATION
  Report Type: 
  Country: None (occurrence: None)
  Receive Date: 20050503
  Receipt Date: 20050503
  Transmission Date: 20051028
  Serious: Yes (Life-Threatening, Hospitalization)
  Sender: FDA-Public Use
  Company Number: None

PATIENT
  Age: 62 Year
  Sex: Female
  Weight: 109 kg

DRUGS (15)
  1. LEVAQUIN [Suspect]
     Indication: BACTERIA SPUTUM IDENTIFIED
     Dosage: 500 MG   DAILY    ORAL
     Route: 048
     Dates: start: 20050103, end: 20050104
  2. LEVAQUIN [Suspect]
     Indication: CITROBACTER INFECTION
     Dosage: 500 MG   DAILY    ORAL
     Route: 048
     Dates: start: 20050103, end: 20050104
  3. LEVAQUIN [Suspect]
     Dosage: 500 MG   DAILY  ORAL
     Route: 048
     Dates: start: 20050107, end: 20050107
  4. LIDODERM [Concomitant]
  5. MORPHINE [Concomitant]
  6. METHADONE HCL [Concomitant]
  7. SENNA [Concomitant]
  8. DOCUSATE [Concomitant]
  9. K-DUR 10 [Concomitant]
  10. KEPPRA [Concomitant]
  11. DESIPRAMIDE HCL [Concomitant]
  12. LEVOTHYROXINE SODIUM [Concomitant]
  13. FUROSEMIDE [Concomitant]
  14. LANSOPRAZOLE [Concomitant]
  15. REGLAN [Concomitant]

REACTIONS (3)
  - CARDIO-RESPIRATORY ARREST [None]
  - POST PROCEDURAL HAEMORRHAGE [None]
  - RETROPERITONEAL HAEMATOMA [None]
